FAERS Safety Report 8409423-7 (Version None)
Quarter: 2012Q2

REPORT INFORMATION
  Report Type: 
  Country: None (occurrence: None)
  Receive Date: 20120605
  Receipt Date: 20120522
  Transmission Date: 20120825
  Serious: Yes (Hospitalization, Other)
  Sender: FDA-Public Use
  Company Number: TW-PAR PHARMACEUTICAL, INC-2012SCPR004398

PATIENT

DRUGS (1)
  1. CLOMIPHENE CITRATE [Suspect]
     Indication: OVULATION INDUCTION
     Dosage: 100 MG DAILY (ON CYCLE DAYS 3-7)
     Route: 048

REACTIONS (5)
  - OVARIAN TORSION [None]
  - UTERINE MALPOSITION [None]
  - OVARIAN NECROSIS [None]
  - OVARIAN HYPERSTIMULATION SYNDROME [None]
  - HAEMOGLOBIN DECREASED [None]
